FAERS Safety Report 18244122 (Version 2)
Quarter: 2020Q3

REPORT INFORMATION
  Report Type: Spontaneous
  Country: US (occurrence: US)
  Receive Date: 20200908
  Receipt Date: 20200910
  Transmission Date: 20201103
  Serious: Yes (Life-Threatening, Hospitalization, Other)
  Sender: FDA-Public Use
  Company Number: US-ADVANZ PHARMA-202008008374

PATIENT

DRUGS (3)
  1. ANAKINRA [Concomitant]
     Active Substance: ANAKINRA
     Indication: JUVENILE IDIOPATHIC ARTHRITIS
     Dosage: 100 MG, QD
     Route: 058
  2. HYDROXYCHLOROQUINE [Suspect]
     Active Substance: HYDROXYCHLOROQUINE
     Indication: JUVENILE IDIOPATHIC ARTHRITIS
     Dosage: 200 MG, BID
     Route: 065
  3. HYDROCORTISONE SALT NOT SPECIFIED [Suspect]
     Active Substance: HYDROCORTISONE
     Indication: JUVENILE IDIOPATHIC ARTHRITIS
     Dosage: 30 MG, QD (20 MG EVERY MORNING AND 10 MG IN THE AFTERNOON)
     Route: 065

REACTIONS (16)
  - Pneumothorax [Recovered/Resolved]
  - Respiratory acidosis [Recovered/Resolved]
  - Fall [Unknown]
  - Subarachnoid haemorrhage [Recovered/Resolved]
  - Respiratory failure [Recovered/Resolved]
  - Muscle injury [Recovered/Resolved]
  - Diaphragm muscle weakness [Recovered/Resolved]
  - Toxicity to various agents [Recovered/Resolved]
  - Myopathy toxic [Recovered/Resolved]
  - Encephalopathy [Recovered/Resolved]
  - Hypercapnia [Recovered/Resolved]
  - Lung opacity [Recovered/Resolved]
  - Tibia fracture [Recovered/Resolved]
  - Hypoxia [Recovered/Resolved]
  - Muscular weakness [Recovered/Resolved]
  - Cervical vertebral fracture [Recovered/Resolved]
